FAERS Safety Report 5143369-5 (Version None)
Quarter: 2006Q4

REPORT INFORMATION
  Report Type: 
  Country: None (occurrence: None)
  Receive Date: 20061101
  Receipt Date: 20061101
  Transmission Date: 20070319
  Serious: Yes (Other)
  Sender: FDA-Public Use
  Company Number: None

PATIENT
  Age: 38 Year
  Sex: Male
  Weight: 117.9352 kg

DRUGS (1)
  1. NIACIN [Suspect]
     Indication: ILL-DEFINED DISORDER
     Dosage: 500 MG 1 TABLET

REACTIONS (2)
  - HEART RATE INCREASED [None]
  - RASH ERYTHEMATOUS [None]
